FAERS Safety Report 18180448 (Version 1)
Quarter: 2020Q3

REPORT INFORMATION
  Report Type: Spontaneous
  Country: US (occurrence: US)
  Receive Date: 20200821
  Receipt Date: 20200821
  Transmission Date: 20201103
  Serious: Yes (Other)
  Sender: FDA-Public Use
  Company Number: None

PATIENT
  Age: 53 Year
  Sex: Male
  Weight: 81 kg

DRUGS (2)
  1. YESCARTA [Suspect]
     Active Substance: AXICABTAGENE CILOLEUCEL
     Indication: DIFFUSE LARGE B-CELL LYMPHOMA STAGE IV
     Route: 042
     Dates: start: 20200717, end: 20200717
  2. YESCARTA [Concomitant]
     Active Substance: AXICABTAGENE CILOLEUCEL
     Dates: start: 20200717, end: 20200717

REACTIONS (2)
  - Neurotoxicity [None]
  - Mental status changes [None]

NARRATIVE: CASE EVENT DATE: 20200805
